FAERS Safety Report 6148951-4 (Version None)
Quarter: 2009Q2

REPORT INFORMATION
  Report Type: 
  Country: None (occurrence: None)
  Receive Date: 20090406
  Receipt Date: 20090327
  Transmission Date: 20091009
  Serious: Yes (Death, Other)
  Sender: FDA-Public Use
  Company Number: RENA-1000173

PATIENT
  Age: 66 Year
  Sex: Male
  Weight: 43 kg

DRUGS (16)
  1. RENAGEL [Suspect]
     Indication: HYPERPHOSPHATAEMIA
     Dosage: 0.5G, TID, ORAL
     Route: 048
     Dates: start: 20030909
  2. REGPARA (CINACALCET HYDROCHLORIDE) TABLET [Suspect]
     Indication: HYPERPARATHYROIDISM SECONDARY
     Dosage: 25 MG, QD, ORAL
     Route: 048
     Dates: start: 20080403, end: 20080417
  3. LANIRAPID (METILDIGOXIN) TABLET [Concomitant]
  4. FULSTAN (FALECALCITRIOL) TABLET [Concomitant]
  5. TICLOPIDINE HCL [Concomitant]
  6. BAYASPIRIN (ACETYLSALICYLIC ACID) TABLET [Concomitant]
  7. GASMOTIN (MOSAPRIDE CITRATE) TABLET [Concomitant]
  8. PROMAC (NITROFURANTOIN) TABLET [Concomitant]
  9. OMEPRAL (OMEPRAZOLE) TABLET [Concomitant]
  10. WARFARIN SODIUM [Concomitant]
  11. MICARDIS [Concomitant]
  12. ADALAT (NIFEDIPINE) TABLET [Concomitant]
  13. ARGAMATE (CALCIUM POLYSTYRENE SULFONATE) [Concomitant]
  14. PURSENNID (SENNA ALEXANDRIA LEAF) TABLET [Concomitant]
  15. LAXOBERON (SODIUM PICOSULFATE) [Concomitant]
  16. ADALAT CC [Concomitant]

REACTIONS (6)
  - ANOREXIA [None]
  - AORTIC VALVE STENOSIS [None]
  - GASTROINTESTINAL PERFORATION [None]
  - INTESTINAL ISCHAEMIA [None]
  - OROPHARYNGEAL DISCOMFORT [None]
  - SEPTIC SHOCK [None]
